FAERS Safety Report 21228536 (Version 2)
Quarter: 2022Q3

REPORT INFORMATION
  Report Type: Spontaneous
  Country: ES (occurrence: ES)
  Receive Date: 20220818
  Receipt Date: 20220822
  Transmission Date: 20221026
  Serious: Yes (Other)
  Sender: FDA-Public Use
  Company Number: ES-AMERICAN REGENT INC-2022002402

PATIENT
  Age: 47 Year
  Sex: Female

DRUGS (2)
  1. FERINJECT [Suspect]
     Active Substance: FERRIC CARBOXYMALTOSE
     Indication: Anaemia
     Dosage: UNSPECIFIED DOSE (1 AMPOULE, 5 VIALS OF 10 ML)
     Dates: start: 20220503, end: 20220503
  2. PAROXETINA STADA [Concomitant]
     Indication: Persistent depressive disorder
     Dosage: AT BREAKFAST (20 MG, 1 IN 1 D)
     Route: 048
     Dates: start: 20220224

REACTIONS (3)
  - Asthenia [Recovered/Resolved]
  - Dyspnoea [Recovered/Resolved]
  - Diarrhoea [Recovered/Resolved]

NARRATIVE: CASE EVENT DATE: 20220503
